FAERS Safety Report 21530378 (Version 2)
Quarter: 2022Q4

REPORT INFORMATION
  Report Type: Spontaneous
  Country: US (occurrence: US)
  Receive Date: 20221031
  Receipt Date: 20221102
  Transmission Date: 20230113
  Serious: Yes (Hospitalization)
  Sender: FDA-Public Use
  Company Number: US-PFIZER INC-202201261718

PATIENT
  Age: 91 Year
  Sex: Female
  Weight: 52.44 kg

DRUGS (1)
  1. IBRANCE [Suspect]
     Active Substance: PALBOCICLIB
     Indication: Breast cancer female
     Dosage: UNK
     Dates: start: 202206

REACTIONS (5)
  - Dysphagia [Recovering/Resolving]
  - Oesophageal disorder [Recovering/Resolving]
  - Pneumonia aspiration [Recovering/Resolving]
  - Blood pressure abnormal [Recovering/Resolving]
  - Atrial fibrillation [Recovering/Resolving]
